FAERS Safety Report 10072294 (Version 1)
Quarter: 2014Q2

REPORT INFORMATION
  Report Type: Spontaneous
  Country: NL (occurrence: NL)
  Receive Date: 20140411
  Receipt Date: 20140411
  Transmission Date: 20141212
  Serious: Yes (Congenital Anomaly)
  Sender: FDA-Public Use
  Company Number: NL-SA-2014SA042278

PATIENT
  Sex: 0

DRUGS (3)
  1. FEXOFENADINE HYDROCHLORIDE [Suspect]
     Route: 064
  2. TAVEGYL [Suspect]
     Route: 065
     Dates: start: 20140115
  3. CETIRIZINE [Suspect]
     Route: 064
     Dates: start: 20131209

REACTIONS (2)
  - Hypoplastic left heart syndrome [Unknown]
  - Foetal exposure during pregnancy [Unknown]
